FAERS Safety Report 25046104 (Version 1)
Quarter: 2025Q1

REPORT INFORMATION
  Report Type: Spontaneous
  Country: FR (occurrence: FR)
  Receive Date: 20250306
  Receipt Date: 20250306
  Transmission Date: 20250409
  Serious: Yes (Other)
  Sender: MERZ
  Company Number: None

PATIENT

DRUGS (1)
  1. XEOMIN [Suspect]
     Active Substance: INCOBOTULINUMTOXINA
     Indication: Torticollis
     Dosage: 130 INTERNATIONAL UNIT
     Route: 030
     Dates: start: 20240902, end: 20240902

REACTIONS (3)
  - Choking [Recovered/Resolved]
  - Pharyngeal paraesthesia [Recovered/Resolved]
  - Dry mouth [Recovered/Resolved]

NARRATIVE: CASE EVENT DATE: 20240901
